FAERS Safety Report 19604049 (Version 1)
Quarter: 2021Q3

REPORT INFORMATION
  Report Type: Report from Study
  Country: US (occurrence: US)
  Receive Date: 20210724
  Receipt Date: 20210724
  Transmission Date: 20211014
  Serious: Yes (Death, Hospitalization, Other)
  Sender: FDA-Public Use
  Company Number: US-AUROBINDO-AUR-APL-2021-031951

PATIENT
  Age: 60 Year
  Sex: Female
  Weight: 63.4 kg

DRUGS (17)
  1. MAGNESIUM [Concomitant]
     Active Substance: MAGNESIUM
     Indication: PRODUCT USED FOR UNKNOWN INDICATION
     Dosage: 500 MILLIGRAM, TWO TIMES A DAY BID
     Route: 065
     Dates: start: 201807
  2. GABAPENTIN. [Concomitant]
     Active Substance: GABAPENTIN
     Indication: PRODUCT USED FOR UNKNOWN INDICATION
     Dosage: 300 MILLIGRAM PNR
     Route: 065
     Dates: start: 20180510
  3. PROZAC [Concomitant]
     Active Substance: FLUOXETINE HYDROCHLORIDE
     Indication: PRODUCT USED FOR UNKNOWN INDICATION
     Dosage: 10 UNK QD
     Route: 065
     Dates: start: 20210607
  4. MIRALAX [Concomitant]
     Active Substance: POLYETHYLENE GLYCOL 3350
     Indication: PRODUCT USED FOR UNKNOWN INDICATION
     Dosage: 17 GRAM QD
     Route: 065
     Dates: start: 2018
  5. PANTOPRAZOLE [Concomitant]
     Active Substance: PANTOPRAZOLE
     Indication: PRODUCT USED FOR UNKNOWN INDICATION
     Dosage: 40 MILLIGRAM QD
     Route: 065
     Dates: start: 2011
  6. MORPHINE SULFATE. [Concomitant]
     Active Substance: MORPHINE SULFATE
     Indication: PRODUCT USED FOR UNKNOWN INDICATION
     Dosage: 2.5 MILLILITER PRN
     Route: 065
     Dates: start: 20210515
  7. AMLODIPINE [Concomitant]
     Active Substance: AMLODIPINE BESYLATE
     Indication: PRODUCT USED FOR UNKNOWN INDICATION
     Dosage: 5 MILLIGRAM PRN
     Route: 065
     Dates: start: 201407
  8. PREDNISONE. [Concomitant]
     Active Substance: PREDNISONE
     Indication: PRODUCT USED FOR UNKNOWN INDICATION
     Dosage: 15 MILLIGRAM EVERY OTHER DAY
     Route: 065
     Dates: start: 20210606
  9. SENNA [Concomitant]
     Active Substance: SENNA LEAF\SENNOSIDES\SENNOSIDES A AND B
     Indication: PRODUCT USED FOR UNKNOWN INDICATION
     Dosage: 8.6?50 MG QD
     Route: 065
     Dates: start: 2018
  10. BELINOSTAT [Suspect]
     Active Substance: BELINOSTAT
     Indication: OVARIAN CANCER RECURRENT
     Dosage: 600 MILLIEQUIVALENT PER SQUARE METRE DAYS 1?5 OF
     Route: 042
     Dates: start: 20210524, end: 20210528
  11. LOPRESSOR [Concomitant]
     Active Substance: METOPROLOL TARTRATE
     Indication: PRODUCT USED FOR UNKNOWN INDICATION
     Dosage: 50 MILLIGRAM QD
     Route: 065
     Dates: start: 20180823
  12. COMPAZINE [Concomitant]
     Active Substance: PROCHLORPERAZINE MALEATE
     Indication: PRODUCT USED FOR UNKNOWN INDICATION
     Dosage: 10 MILLIGRAM PRN
     Route: 065
     Dates: start: 20190619
  13. DELSYM [Concomitant]
     Active Substance: DEXTROMETHORPHAN
     Indication: PRODUCT USED FOR UNKNOWN INDICATION
     Dosage: 10 MILLILITER PRN
     Route: 065
     Dates: start: 20210515
  14. RIBOCICLIB. [Suspect]
     Active Substance: RIBOCICLIB
     Indication: OVARIAN CANCER RECURRENT
     Dosage: 200 MILLIGRAM, QD
     Route: 048
     Dates: start: 20210524, end: 20210613
  15. ASPIRIN. [Concomitant]
     Active Substance: ASPIRIN
     Indication: PRODUCT USED FOR UNKNOWN INDICATION
     Dosage: 81 MILLIGRAM, ONCE A DAY QD
     Route: 065
     Dates: start: 201807
  16. LISINOPRIL. [Concomitant]
     Active Substance: LISINOPRIL
     Indication: PRODUCT USED FOR UNKNOWN INDICATION
     Dosage: 20 MILLIGRAM PRN
     Route: 065
     Dates: start: 20181006
  17. ALBUTEROL. [Concomitant]
     Active Substance: ALBUTEROL
     Indication: PRODUCT USED FOR UNKNOWN INDICATION
     Dosage: 2 PUFFS PNR
     Dates: start: 202011

REACTIONS (3)
  - Hypoxia [Fatal]
  - Dyspnoea [Fatal]
  - Disease progression [Fatal]

NARRATIVE: CASE EVENT DATE: 20210614
